FAERS Safety Report 9649305 (Version 4)
Quarter: 2014Q3

REPORT INFORMATION
  Report Type: Spontaneous
  Country: SE (occurrence: SE)
  Receive Date: 20131028
  Receipt Date: 20140817
  Transmission Date: 20150326
  Serious: Yes (Other)
  Sender: FDA-Public Use
  Company Number: PHHY2013SE120992

PATIENT
  Sex: Female

DRUGS (2)
  1. TRILEPTAL [Suspect]
     Active Substance: OXCARBAZEPINE
     Dosage: UNK UKN, UNK
  2. TRILEPTAL [Suspect]
     Active Substance: OXCARBAZEPINE
     Dosage: UNK UKN, UNK (DECREASED DOSE)

REACTIONS (5)
  - Muscle tightness [Unknown]
  - Maternal exposure during pregnancy [Unknown]
  - Tic [Unknown]
  - Abortion spontaneous [Unknown]
  - Dry mouth [Unknown]
